FAERS Safety Report 16009995 (Version 1)
Quarter: 2019Q1

REPORT INFORMATION
  Report Type: Spontaneous
  Country: IL (occurrence: IL)
  Receive Date: 20190227
  Receipt Date: 20190227
  Transmission Date: 20190418
  Serious: Yes (Death)
  Sender: FDA-Public Use
  Company Number: IL-ABBVIE-19K-082-2682618-00

PATIENT
  Age: 18 Year
  Sex: Male

DRUGS (2)
  1. VENCLEXTA [Suspect]
     Active Substance: VENETOCLAX
     Indication: ACUTE MYELOID LEUKAEMIA
     Route: 048
     Dates: start: 20190224, end: 20190224
  2. VENCLEXTA [Suspect]
     Active Substance: VENETOCLAX
     Route: 048
     Dates: start: 20190225, end: 20190225

REACTIONS (2)
  - Sepsis [Fatal]
  - Bacterial infection [Fatal]

NARRATIVE: CASE EVENT DATE: 201902
